FAERS Safety Report 23970447 (Version 1)
Quarter: 2024Q2

REPORT INFORMATION
  Report Type: Spontaneous
  Country: US (occurrence: US)
  Receive Date: 20240613
  Receipt Date: 20240613
  Transmission Date: 20240716
  Serious: Yes (Other)
  Sender: FDA-Public Use
  Company Number: US-APOTEX-2024AP007161

PATIENT
  Age: 53 Year
  Sex: Female

DRUGS (3)
  1. SELEGILINE [Suspect]
     Active Substance: SELEGILINE
     Indication: Parkinson^s disease
     Dosage: UNK
     Route: 065
  2. CARBIDOPA\LEVODOPA [Suspect]
     Active Substance: CARBIDOPA\LEVODOPA
     Indication: Parkinson^s disease
     Dosage: UNK
     Route: 065
  3. AMANTADINE [Suspect]
     Active Substance: AMANTADINE
     Indication: Parkinson^s disease
     Dosage: UNK
     Route: 065

REACTIONS (1)
  - Dyskinesia hyperpyrexia syndrome [Recovered/Resolved]
